FAERS Safety Report 23347427 (Version 4)
Quarter: 2024Q2

REPORT INFORMATION
  Report Type: Spontaneous
  Country: DE (occurrence: DE)
  Receive Date: 20231228
  Receipt Date: 20240529
  Transmission Date: 20240715
  Serious: Yes (Hospitalization, Other)
  Sender: FDA-Public Use
  Company Number: None

PATIENT
  Age: 37 Year
  Sex: Female

DRUGS (9)
  1. ORGALUTRAN [Suspect]
     Active Substance: GANIRELIX ACETATE
     Indication: Assisted reproductive technology
     Dosage: 0.25 MILLIGRAM, QD
     Route: 065
     Dates: start: 20231007, end: 20231011
  2. FOLLITROPIN BETA [Suspect]
     Active Substance: FOLLITROPIN BETA
     Indication: Assisted reproductive technology
     Dosage: 133 INTERNATIONAL UNIT, QD
     Route: 065
     Dates: start: 20231005, end: 20231005
  3. FOLLITROPIN BETA [Suspect]
     Active Substance: FOLLITROPIN BETA
     Dosage: 137.5 INTERNATIONAL UNIT, QD
     Route: 065
     Dates: start: 20231004, end: 20231004
  4. FOLLITROPIN BETA [Suspect]
     Active Substance: FOLLITROPIN BETA
     Dosage: 125 INTERNATIONAL UNIT, QD
     Route: 065
     Dates: start: 20231006, end: 20231009
  5. FOLLITROPIN BETA [Suspect]
     Active Substance: FOLLITROPIN BETA
     Dosage: 109 INTERNATIONAL UNIT, QD
     Route: 065
     Dates: start: 20231011, end: 20231011
  6. FOLLITROPIN BETA [Suspect]
     Active Substance: FOLLITROPIN BETA
     Dosage: 117 INTERNATIONAL UNIT, QD
     Route: 065
     Dates: start: 20231010, end: 20231010
  7. TRIPTORELIN ACETATE [Suspect]
     Active Substance: TRIPTORELIN ACETATE
     Indication: Assisted reproductive technology
     Dosage: 0.1 MILLIGRAM, QD
     Route: 065
     Dates: start: 20231012, end: 20231012
  8. LUVERIS [Suspect]
     Active Substance: LUTROPIN ALFA
     Indication: Assisted reproductive technology
     Dosage: 75 INTERNATIONAL UNIT,QD
     Route: 065
     Dates: start: 20231011, end: 20231011
  9. FOLLITROPIN\LUTROPIN ALFA [Suspect]
     Active Substance: FOLLITROPIN\LUTROPIN ALFA
     Indication: Assisted reproductive technology
     Dosage: 137.5 INTERNATIONAL UNIT, QD
     Route: 065
     Dates: start: 20231002, end: 20231003

REACTIONS (2)
  - Pyrexia [Recovered/Resolved]
  - Ovarian hyperstimulation syndrome [Recovered/Resolved]

NARRATIVE: CASE EVENT DATE: 20231014
